FAERS Safety Report 5400482-2 (Version None)
Quarter: 2007Q3

REPORT INFORMATION
  Report Type: 
  Country: None (occurrence: None)
  Receive Date: 20070730
  Receipt Date: 20070723
  Transmission Date: 20080115
  Serious: Yes (Hospitalization, Other)
  Sender: FDA-Public Use
  Company Number: CA-ASTRAZENECA-2007UW07976

PATIENT
  Age: 71 Year
  Sex: Female
  Weight: 75.9 kg

DRUGS (30)
  1. ARIMIDEX [Suspect]
     Indication: BREAST CANCER FEMALE
     Route: 048
     Dates: start: 20070402
  2. ADVAIR DISKUS 100/50 [Concomitant]
     Dosage: 250/25 MG 2 INH BID
  3. DITROPAN [Concomitant]
     Dates: start: 20060101
  4. LAXATIVES [Concomitant]
  5. ASPIRIN [Concomitant]
     Dates: start: 20070201
  6. CALCIUM CHLORIDE [Concomitant]
  7. CELEBREX [Concomitant]
     Dates: start: 20070201
  8. CELEXA [Concomitant]
     Dates: start: 20070321
  9. CODEINE SUL TAB [Concomitant]
  10. CODEINE SUL TAB [Concomitant]
  11. VITAMIN D [Concomitant]
  12. LASIX [Concomitant]
  13. PREVACID [Concomitant]
     Dates: start: 20030101
  14. POTASSIUM CHLORIDE [Concomitant]
     Dates: start: 20070204
  15. NITROGLYCERIN [Concomitant]
     Route: 060
  16. COUMADIN [Concomitant]
     Dosage: 1/2 TAB
     Dates: start: 20070208
  17. COMBIVENT [Concomitant]
     Dosage: 2 INH QID
  18. ACETAMINOPHEN [Concomitant]
     Dates: start: 20070301
  19. BISACODYL [Concomitant]
     Dates: start: 20070301
  20. CLOTRIMAZOLE/HYDROCORTISONE [Concomitant]
     Route: 061
  21. CYANOCOBALAMIN [Concomitant]
     Route: 030
  22. FENOFIBRATE [Concomitant]
     Dates: start: 20070420
  23. FUROSEMIDE [Concomitant]
     Dates: start: 20070201
  24. GLYCERINE [Concomitant]
     Route: 054
  25. HYDROCORTISONE [Concomitant]
     Route: 054
  26. LORAZEPAM [Concomitant]
  27. SALBUTAMOL [Concomitant]
     Dosage: 2 INH
  28. SPIRIVA [Concomitant]
  29. UREA [Concomitant]
     Dosage: 12 %
     Route: 061
  30. FLUTICASONE+SALMETEROL [Concomitant]
     Dosage: 2 INH

REACTIONS (1)
  - BLOOD TRIGLYCERIDES INCREASED [None]
